FAERS Safety Report 12160422 (Version 2)
Quarter: 2016Q1

REPORT INFORMATION
  Report Type: Spontaneous
  Country: AU (occurrence: AU)
  Receive Date: 20160308
  Receipt Date: 20160317
  Transmission Date: 20160526
  Serious: Yes (Other)
  Sender: FDA-Public Use
  Company Number: AU-BRISTOL-MYERS SQUIBB COMPANY-BMS-2016-014895

PATIENT
  Sex: Female

DRUGS (1)
  1. OPDIVO [Suspect]
     Active Substance: NIVOLUMAB
     Indication: NON-SMALL CELL LUNG CANCER
     Dosage: N/A; 13 CYCLES
     Route: 065
     Dates: start: 201508

REACTIONS (5)
  - Leukaemoid reaction [Unknown]
  - Neutrophil count increased [Unknown]
  - Rash [Unknown]
  - Eosinophil count increased [Unknown]
  - Pruritus [Unknown]
